FAERS Safety Report 7916149 (Version 3)
Quarter: 2015Q4

REPORT INFORMATION
  Report Type: Spontaneous
  Country: US (occurrence: US)
  Receive Date: 20110427
  Receipt Date: 20151124
  Transmission Date: 20160305
  Serious: Yes (Other)
  Sender: FDA-Public Use
  Company Number: US-BAYER-2011-034705

PATIENT
  Age: 28 Year
  Sex: Female
  Weight: 52.15 kg

DRUGS (3)
  1. YAZ [Suspect]
     Active Substance: DROSPIRENONE\ETHINYL ESTRADIOL
     Indication: CONTRACEPTION
     Dosage: UNK
     Route: 048
     Dates: start: 2009, end: 2009
  2. FLUCONAZOLE. [Concomitant]
     Active Substance: FLUCONAZOLE
  3. YASMIN [Suspect]
     Active Substance: DROSPIRENONE\ETHINYL ESTRADIOL
     Indication: CONTRACEPTION
     Dosage: UNK
     Route: 048
     Dates: start: 2005, end: 2009

REACTIONS (6)
  - Embolism arterial [None]
  - Visual impairment [None]
  - Metamorphopsia [None]
  - Injury [None]
  - Amaurosis fugax [None]
  - Blindness [None]

NARRATIVE: CASE EVENT DATE: 200905
